FAERS Safety Report 6379124-8 (Version None)
Quarter: 2009Q3

REPORT INFORMATION
  Report Type: 
  Country: None (occurrence: None)
  Receive Date: 20090923
  Receipt Date: 20090923
  Transmission Date: 20100115
  Serious: Yes (Other)
  Sender: FDA-Public Use
  Company Number: None

PATIENT
  Age: 2 Year
  Sex: Female
  Weight: 15.4223 kg

DRUGS (2)
  1. SINGULAIR [Suspect]
     Indication: EAR INFECTION
     Dosage: 1 TABLET EACH EVENING
     Dates: start: 20070710, end: 20090720
  2. SINGULAIR [Suspect]
     Indication: SINUSITIS
     Dosage: 1 TABLET EACH EVENING
     Dates: start: 20070710, end: 20090720

REACTIONS (17)
  - AGITATION [None]
  - ANXIETY [None]
  - DEPRESSION [None]
  - DIARRHOEA [None]
  - HOSTILITY [None]
  - HUNGER [None]
  - INSOMNIA [None]
  - IRRITABILITY [None]
  - MIDDLE INSOMNIA [None]
  - MOOD SWINGS [None]
  - NIGHT SWEATS [None]
  - PAIN [None]
  - POLLAKIURIA [None]
  - PRURITUS [None]
  - SCREAMING [None]
  - SLEEP TERROR [None]
  - THIRST [None]
